FAERS Safety Report 6016097-1 (Version None)
Quarter: 2008Q4

REPORT INFORMATION
  Report Type: 
  Country: None (occurrence: None)
  Receive Date: 20081222
  Receipt Date: 20081215
  Transmission Date: 20090506
  Serious: Yes (Hospitalization, Other)
  Sender: FDA-Public Use
  Company Number: FR-ELI_LILLY_AND_COMPANY-FR200812003622

PATIENT
  Sex: Female

DRUGS (12)
  1. PROZAC [Suspect]
     Indication: DEPRESSION
     Dosage: 5 MG, DAILY (1/D)
     Route: 048
     Dates: end: 20080308
  2. TOPALGIC [Concomitant]
     Indication: ANALGESIA
     Route: 048
     Dates: start: 20080303, end: 20080304
  3. TARDYFERON [Concomitant]
  4. ACETAMINOPHEN [Concomitant]
  5. DILTIAZEM HCL [Concomitant]
  6. FOSAVANCE [Concomitant]
  7. INIPOMP [Concomitant]
     Dates: start: 20080301
  8. LOVENOX [Concomitant]
     Dates: start: 20080301
  9. MOVICOL [Concomitant]
     Dates: start: 20080301
  10. CALCIUM [Concomitant]
     Dates: start: 20080301
  11. DEDROGYL [Concomitant]
     Dates: start: 20080301
  12. RISPERDAL [Concomitant]
     Dosage: UNK, UNK
     Dates: start: 20080301, end: 20080101

REACTIONS (10)
  - AGITATION [None]
  - AORTIC STENOSIS [None]
  - ATRIAL FIBRILLATION [None]
  - CONFUSIONAL STATE [None]
  - DISTURBANCE IN ATTENTION [None]
  - FALL [None]
  - HUMERUS FRACTURE [None]
  - JOINT INJURY [None]
  - LUNG INFECTION [None]
  - RIB FRACTURE [None]
